FAERS Safety Report 15729987 (Version 10)
Quarter: 2019Q4

REPORT INFORMATION
  Report Type: Report from Study
  Country: CH (occurrence: CH)
  Receive Date: 20181217
  Receipt Date: 20191008
  Transmission Date: 20200122
  Serious: Yes (Hospitalization)
  Sender: FDA-Public Use
  Company Number: CH-JNJFOC-20181210019

PATIENT
  Age: 88 Year
  Sex: Male
  Weight: 90 kg

DRUGS (5)
  1. TOREM [Concomitant]
     Active Substance: TORSEMIDE
     Indication: OEDEMA
     Route: 048
  2. YONDELIS [Suspect]
     Active Substance: TRABECTEDIN
     Indication: SARCOMA
  3. PANTOZOL [Concomitant]
     Active Substance: PANTOPRAZOLE SODIUM
     Dosage: DEPENDING ON INTERNATIONAL NORMALIZING RATIO
     Route: 048
  4. MARCOUMAR [Concomitant]
     Active Substance: PHENPROCOUMON
     Dosage: DEPENDING ON INTERNATIONAL NORMALIZING RATIO
     Route: 065
  5. YONDELIS [Suspect]
     Active Substance: TRABECTEDIN
     Indication: SARCOMATOID CARCINOMA OF THE LUNG
     Route: 042
     Dates: start: 20181106, end: 20181128

REACTIONS (2)
  - Haematotoxicity [Recovering/Resolving]
  - Pneumonia [Recovered/Resolved]

NARRATIVE: CASE EVENT DATE: 20181205
